FAERS Safety Report 4430699-5 (Version None)
Quarter: 2004Q3

REPORT INFORMATION
  Report Type: 
  Country: None (occurrence: None)
  Receive Date: 20040821
  Receipt Date: 20040205
  Transmission Date: 20050211
  Serious: Yes (Hospitalization)
  Sender: FDA-Public Use
  Company Number: WAES 0402USA00554

PATIENT
  Age: 52 Year
  Sex: Female

DRUGS (2)
  1. VIOXX [Suspect]
     Dosage: PO
     Route: 048
  2. PHENOBARBITAL TAB [Concomitant]

REACTIONS (1)
  - CONVULSION [None]
